FAERS Safety Report 5747959-8 (Version None)
Quarter: 2008Q2

REPORT INFORMATION
  Report Type: 
  Country: None (occurrence: None)
  Receive Date: 20080523
  Receipt Date: 20080502
  Transmission Date: 20081010
  Serious: No
  Sender: FDA-Public Use
  Company Number: US-JNJFOC-20080500934

PATIENT
  Sex: Male
  Weight: 80.74 kg

DRUGS (2)
  1. INVEGA [Suspect]
     Indication: BIPOLAR DISORDER
     Route: 048
  2. LEXAPRO [Concomitant]
     Indication: AFFECTIVE DISORDER

REACTIONS (1)
  - WRONG TECHNIQUE IN DRUG USAGE PROCESS [None]
